FAERS Safety Report 7274760-9 (Version None)
Quarter: 2011Q1

REPORT INFORMATION
  Report Type: 
  Country: None (occurrence: None)
  Receive Date: 20110202
  Receipt Date: 20110202
  Transmission Date: 20110831
  Serious: No
  Sender: FDA-Public Use
  Company Number: None

PATIENT
  Sex: Female
  Weight: 88.4514 kg

DRUGS (1)
  1. BACTRIM DS [Suspect]
     Dosage: 310 ORAL
     Route: 048

REACTIONS (1)
  - HYPERSENSITIVITY [None]
